FAERS Safety Report 4621527-3 (Version None)
Quarter: 2005Q1

REPORT INFORMATION
  Report Type: 
  Country: None (occurrence: None)
  Receive Date: 20050328
  Receipt Date: 20031202
  Transmission Date: 20050727
  Serious: Yes (Death)
  Sender: FDA-Public Use
  Company Number: 9929

PATIENT
  Age: 18 Year
  Sex: Male

DRUGS (1)
  1. METHOTREXATE [Suspect]
     Dosage: 3.6 G/M2 PER CYCLE
     Dates: start: 19940101, end: 19940801

REACTIONS (4)
  - INTERSTITIAL LUNG DISEASE [None]
  - PLEURISY [None]
  - PNEUMOTHORAX [None]
  - PULMONARY FIBROSIS [None]
